FAERS Safety Report 14716084 (Version 1)
Quarter: 2018Q2

REPORT INFORMATION
  Report Type: Spontaneous
  Country: MX (occurrence: MX)
  Receive Date: 20180404
  Receipt Date: 20180404
  Transmission Date: 20180711
  Serious: Yes (Death)
  Sender: FDA-Public Use
  Company Number: MX-PFIZER INC-2018137054

PATIENT
  Sex: Female

DRUGS (1)
  1. TORISEL [Suspect]
     Active Substance: TEMSIROLIMUS
     Dosage: 50 MG, UNK
     Route: 042

REACTIONS (4)
  - Pleural effusion [Fatal]
  - Anaemia [Fatal]
  - Thrombocytopenia [Fatal]
  - Disease progression [Fatal]
